FAERS Safety Report 26102818 (Version 1)
Quarter: 2025Q4

REPORT INFORMATION
  Report Type: Spontaneous
  Country: AR (occurrence: AR)
  Receive Date: 20251128
  Receipt Date: 20251128
  Transmission Date: 20260118
  Serious: Yes (Death)
  Sender: PFIZER
  Company Number: AR-PFIZER INC-202500200542

PATIENT
  Age: 50 Year
  Sex: Female

DRUGS (2)
  1. BRAFTOVI [Suspect]
     Active Substance: ENCORAFENIB
     Indication: Colorectal cancer metastatic
     Dosage: 300 MG, 1X/DAY
     Dates: start: 20250404
  2. CETUXIMAB [Suspect]
     Active Substance: CETUXIMAB
     Dosage: UNK

REACTIONS (1)
  - Death [Fatal]
